FAERS Safety Report 4435718-8 (Version None)
Quarter: 2004Q3

REPORT INFORMATION
  Report Type: 
  Country: None (occurrence: None)
  Receive Date: 20040726
  Receipt Date: 20040426
  Transmission Date: 20050211
  Serious: No
  Sender: FDA-Public Use
  Company Number: USA040465792

PATIENT
  Age: 75 Year
  Sex: Female
  Weight: 48 kg

DRUGS (2)
  1. FORTEO [Suspect]
     Indication: OSTEOPOROSIS
     Dosage: 20 UG 1 DAY
     Dates: start: 20040101
  2. EVISTA [Suspect]
     Indication: OSTEOPOROSIS
     Dates: start: 20030101, end: 20040101

REACTIONS (2)
  - BONE DENSITY DECREASED [None]
  - INJECTION SITE HAEMORRHAGE [None]
